FAERS Safety Report 6945478-4 (Version None)
Quarter: 2010Q3

REPORT INFORMATION
  Report Type: 
  Country: None (occurrence: None)
  Receive Date: 20100827
  Receipt Date: 20100730
  Transmission Date: 20110219
  Serious: No
  Sender: FDA-Public Use
  Company Number: US-PFIZER INC-2010096839

PATIENT

DRUGS (1)
  1. DIFLUCAN [Suspect]
     Indication: SYSTEMIC CANDIDA
     Dosage: UNK

REACTIONS (2)
  - PHOTOSENSITIVITY REACTION [None]
  - VITREOUS FLOATERS [None]
